FAERS Safety Report 21662331 (Version 2)
Quarter: 2022Q4

REPORT INFORMATION
  Report Type: Spontaneous
  Country: US (occurrence: US)
  Receive Date: 20221130
  Receipt Date: 20221207
  Transmission Date: 20230113
  Serious: No
  Sender: FDA-Public Use
  Company Number: US-AMGEN-USASP2022202072

PATIENT
  Age: 80 Year
  Sex: Male

DRUGS (9)
  1. AIMOVIG [Suspect]
     Active Substance: ERENUMAB-AOOE
     Indication: Headache
     Dosage: 70 MILLIGRAM, QMO
     Route: 058
     Dates: start: 202204
  2. AIMOVIG [Suspect]
     Active Substance: ERENUMAB-AOOE
     Indication: Migraine
  3. AIMOVIG [Suspect]
     Active Substance: ERENUMAB-AOOE
     Indication: Tension
  4. CETIRIZINE [Concomitant]
     Active Substance: CETIRIZINE HYDROCHLORIDE
     Indication: Hypersensitivity
     Dosage: UNK
     Route: 065
     Dates: start: 202204
  5. EXCEDRIN [Concomitant]
     Active Substance: ACETAMINOPHEN\ASPIRIN\CAFFEINE
     Indication: Headache
     Dosage: UNK
     Route: 065
     Dates: start: 2022
  6. GABAPENTIN [Concomitant]
     Active Substance: GABAPENTIN
     Indication: Sciatica
     Dosage: UNK
     Route: 065
  7. LEVOTHYROXINE [Concomitant]
     Active Substance: LEVOTHYROXINE
     Indication: Hypothyroidism
     Dosage: UNK
     Route: 065
  8. PRAVASTATIN [Concomitant]
     Active Substance: PRAVASTATIN
     Indication: Blood cholesterol
     Dosage: UNK
     Route: 065
  9. SUMATRIPTAN [Concomitant]
     Active Substance: SUMATRIPTAN
     Indication: Migraine
     Dosage: 25 MILLIGRAM

REACTIONS (5)
  - Drug dose omission by device [Unknown]
  - Device difficult to use [Unknown]
  - Injection site urticaria [Recovering/Resolving]
  - Injection site swelling [Recovering/Resolving]
  - Injection site pruritus [Recovering/Resolving]

NARRATIVE: CASE EVENT DATE: 20220101
